FAERS Safety Report 22090530 (Version 2)
Quarter: 2023Q1

REPORT INFORMATION
  Report Type: Report from Study
  Country: JP (occurrence: JP)
  Receive Date: 20230313
  Receipt Date: 20230320
  Transmission Date: 20230417
  Serious: Yes (Other)
  Sender: FDA-Public Use
  Company Number: JP-JNJFOC-20230307213

PATIENT
  Age: 67 Year
  Sex: Female

DRUGS (10)
  1. AMIVANTAMAB [Suspect]
     Active Substance: AMIVANTAMAB
     Indication: Non-small cell lung cancer metastatic
     Route: 042
     Dates: start: 20210908, end: 20221222
  2. PEMETREXED [Suspect]
     Active Substance: PEMETREXED
     Indication: Non-small cell lung cancer metastatic
     Route: 042
     Dates: start: 20210908, end: 20230112
  3. CARBOPLATIN [Concomitant]
     Active Substance: CARBOPLATIN
     Indication: Non-small cell lung cancer metastatic
     Route: 042
     Dates: start: 20210908, end: 20211111
  4. PRANOPROFEN [Concomitant]
     Active Substance: PRANOPROFEN
     Indication: Prophylaxis
     Route: 047
     Dates: start: 20221227, end: 20230206
  5. DEXAMETHASONE [Concomitant]
     Active Substance: DEXAMETHASONE
     Indication: Angular cheilitis
     Route: 061
     Dates: start: 20230117
  6. MIDAZOLAM [Concomitant]
     Active Substance: MIDAZOLAM
     Indication: Anaesthesia
     Route: 042
     Dates: start: 20230224, end: 20230224
  7. MEPERIDINE HYDROCHLORIDE [Concomitant]
     Active Substance: MEPERIDINE HYDROCHLORIDE
     Indication: Anaesthesia
     Route: 042
     Dates: start: 20230224, end: 20230224
  8. FLUMAZENIL [Concomitant]
     Active Substance: FLUMAZENIL
     Indication: Reversal of sedation
     Route: 042
     Dates: start: 20230224, end: 20230224
  9. LIDOCAINE [Concomitant]
     Active Substance: LIDOCAINE
     Indication: Anaesthesia
     Route: 061
     Dates: start: 20230224, end: 20230224
  10. ALPROSTADIL ALFADEX [Concomitant]
     Active Substance: ALPROSTADIL ALFADEX
     Indication: Skin ulcer
     Dosage: DOSE 1, UNITS NOT PROVIDED
     Route: 061
     Dates: start: 20221228, end: 202303

REACTIONS (1)
  - Atypical mycobacterial infection [Not Recovered/Not Resolved]

NARRATIVE: CASE EVENT DATE: 20230126
